FAERS Safety Report 15005245 (Version 1)
Quarter: 2018Q2

REPORT INFORMATION
  Report Type: Spontaneous
  Country: US (occurrence: US)
  Receive Date: 20180525
  Receipt Date: 20180525
  Transmission Date: 20180711
  Serious: Yes (Hospitalization, Disabling)
  Sender: FDA-Public Use
  Company Number: None

PATIENT
  Age: 71 Year
  Sex: Female

DRUGS (3)
  1. TAMOXIFEN [Concomitant]
     Active Substance: TAMOXIFEN
  2. CLINDAMYCIN. [Suspect]
     Active Substance: CLINDAMYCIN
     Indication: ANTIBIOTIC PROPHYLAXIS
     Route: 042
  3. METHYLENE BLUE. [Suspect]
     Active Substance: METHYLENE BLUE
     Indication: SCAN WITH CONTRAST

REACTIONS (11)
  - Insomnia [None]
  - Anaesthetic complication [None]
  - Anxiety [None]
  - Anaesthetic complication cardiac [None]
  - Breast oedema [None]
  - Musculoskeletal pain [None]
  - Lymphoedema [None]
  - Breast pain [None]
  - Neck pain [None]
  - Pain [None]
  - Chromaturia [None]

NARRATIVE: CASE EVENT DATE: 20160826
